FAERS Safety Report 10607298 (Version 1)
Quarter: 2014Q4

REPORT INFORMATION
  Report Type: Spontaneous
  Country: US (occurrence: None)
  Receive Date: 20141124
  Receipt Date: 20141124
  Transmission Date: 20150529
  Serious: Yes (Hospitalization)
  Sender: FDA-Public Use
  Company Number: None

PATIENT
  Age: 23 Year
  Sex: Male
  Weight: 81.8 kg

DRUGS (13)
  1. LACTULOSE. [Concomitant]
     Active Substance: LACTULOSE
  2. ALBUTEROL. [Concomitant]
     Active Substance: ALBUTEROL
  3. DOCUSATE [Concomitant]
     Active Substance: DOCUSATE
  4. COLACE [Concomitant]
     Active Substance: DOCUSATE SODIUM
  5. EUCERIN [Concomitant]
     Active Substance: ENSULIZOLE\EUCERIN\OCTINOXATE\OCTISALATE\TITANIUM DIOXIDE\ZINC OXIDE
  6. DILAUDID [Suspect]
     Active Substance: HYDROMORPHONE HYDROCHLORIDE
     Indication: PAIN
     Route: 042
  7. COMBIVENT [Concomitant]
     Active Substance: ALBUTEROL SULFATE\IPRATROPIUM BROMIDE
  8. APAP [Concomitant]
     Active Substance: ACETAMINOPHEN
  9. ALPRAZOLAM. [Concomitant]
     Active Substance: ALPRAZOLAM
  10. BACLOFEN. [Concomitant]
     Active Substance: BACLOFEN
  11. NEURONTIN [Concomitant]
     Active Substance: GABAPENTIN
  12. MAALOX ANTACID [Concomitant]
     Active Substance: ALUMINUM HYDROXIDE\DIMETHICONE\MAGNESIUM HYDROXIDE
  13. VASOLEX [Concomitant]
     Active Substance: BALSAM PERU\CASTOR OIL\TRYPSIN

REACTIONS (3)
  - Oxygen saturation decreased [None]
  - Unresponsive to stimuli [None]
  - Hypercapnia [None]

NARRATIVE: CASE EVENT DATE: 20140418
